FAERS Safety Report 8021673-0 (Version None)
Quarter: 2011Q4

REPORT INFORMATION
  Report Type: 
  Country: None (occurrence: None)
  Receive Date: 20111230
  Receipt Date: 20111220
  Transmission Date: 20120403
  Serious: Yes (Hospitalization)
  Sender: FDA-Public Use
  Company Number: JPI-P-018645

PATIENT
  Age: 68 Year
  Sex: Male
  Weight: 133.3575 kg

DRUGS (6)
  1. DEXTROAMPHETAMINE [Concomitant]
  2. IMIPRAMINE [Suspect]
     Indication: CATAPLEXY
  3. XYREM [Suspect]
     Indication: CATAPLEXY
     Dosage: 6 GM (3 GM,2 IN 1 D),ORAL,  ORAL, 9 GM (4.5  GM,2 IN 1 D),ORAL
     Route: 048
     Dates: start: 20080703, end: 20080101
  4. XYREM [Suspect]
     Indication: CATAPLEXY
     Dosage: 6 GM (3 GM,2 IN 1 D),ORAL,  ORAL, 9 GM (4.5  GM,2 IN 1 D),ORAL
     Route: 048
     Dates: start: 20080903
  5. XYREM [Suspect]
     Indication: CATAPLEXY
     Dosage: 6 GM (3 GM,2 IN 1 D),ORAL,  ORAL, 9 GM (4.5  GM,2 IN 1 D),ORAL
     Route: 048
     Dates: start: 20080101, end: 20080101
  6. VENLAFAXINE HYDROCHLORIDE [Concomitant]

REACTIONS (2)
  - PROSTATIC PAIN [None]
  - HEART RATE IRREGULAR [None]
